FAERS Safety Report 6192280-X (Version None)
Quarter: 2009Q2

REPORT INFORMATION
  Report Type: 
  Country: None (occurrence: None)
  Receive Date: 20090515
  Receipt Date: 20090511
  Transmission Date: 20091009
  Serious: Yes (Other)
  Sender: FDA-Public Use
  Company Number: US-JNJCH-2009013065

PATIENT
  Age: 8 Year
  Sex: Female
  Weight: 21.8 kg

DRUGS (3)
  1. ZYRTEC [Suspect]
     Indication: HYPERSENSITIVITY
     Dosage: TEXT:ONE TABLET DAILY
     Route: 048
  2. SINGULAIR [Suspect]
     Indication: HYPERSENSITIVITY
     Dosage: TEXT:UNSPECIFIED ONCE DAILY
     Route: 065
  3. DRUG, UNSPECIFIED [Concomitant]
     Indication: CONVULSION
     Dosage: TEXT:UNKNOWN
     Route: 065

REACTIONS (2)
  - CONVULSION [None]
  - DRUG INEFFECTIVE [None]
